FAERS Safety Report 16558366 (Version 3)
Quarter: 2019Q3

REPORT INFORMATION
  Report Type: Spontaneous
  Country: US (occurrence: US)
  Receive Date: 20190711
  Receipt Date: 20190917
  Transmission Date: 20191004
  Serious: No
  Sender: FDA-Public Use
  Company Number: US-AMGEN-USASP2019108697

PATIENT
  Age: 52 Year
  Sex: Male
  Weight: 89.8 kg

DRUGS (1)
  1. REPATHA [Suspect]
     Active Substance: EVOLOCUMAB
     Indication: BLOOD CHOLESTEROL INCREASED
     Dosage: 420 MILLIGRAM, QMO
     Route: 065
     Dates: start: 20180503

REACTIONS (2)
  - Incorrect dose administered by device [Unknown]
  - Device issue [Unknown]

NARRATIVE: CASE EVENT DATE: 20190705
